FAERS Safety Report 24857488 (Version 1)
Quarter: 2025Q1

REPORT INFORMATION
  Report Type: Spontaneous
  Country: US (occurrence: None)
  Receive Date: 20250117
  Receipt Date: 20250117
  Transmission Date: 20250408
  Serious: Yes (Hospitalization)
  Sender: FDA-CTU
  Company Number: None

PATIENT
  Sex: Female

DRUGS (2)
  1. DROXIDOPA [Suspect]
     Active Substance: DROXIDOPA
     Indication: Orthostatic hypotension
     Dosage: FREQUENCY : TWICE A DAY;?
     Route: 048
     Dates: start: 202206
  2. ORENCIA [Concomitant]
     Active Substance: ABATACEPT

REACTIONS (3)
  - Dizziness [None]
  - Extra dose administered [None]
  - Product use issue [None]
